FAERS Safety Report 10720499 (Version 7)
Quarter: 2015Q4

REPORT INFORMATION
  Report Type: Report from Study
  Country: CA (occurrence: CA)
  Receive Date: 20150119
  Receipt Date: 20151210
  Transmission Date: 20160304
  Serious: Yes (Hospitalization, Other)
  Sender: FDA-Public Use
  Company Number: PHHY2015CA005492

PATIENT
  Age: 65 Year
  Sex: Male

DRUGS (2)
  1. SANDOSTATIN LAR DEPOT [Suspect]
     Active Substance: OCTREOTIDE ACETATE
     Indication: CARCINOID TUMOUR
     Dosage: 30 MG, QMO
     Route: 030
     Dates: start: 20140819
  2. SANDOSTATIN [Suspect]
     Active Substance: OCTREOTIDE ACETATE
     Indication: CARCINOID TUMOUR
     Route: 058
     Dates: start: 20140703

REACTIONS (8)
  - Blood pressure systolic increased [Unknown]
  - Lung neoplasm [Unknown]
  - Hepatic lesion [Unknown]
  - Pancreatitis [Unknown]
  - Pulmonary mass [Unknown]
  - Body temperature increased [Unknown]
  - Hepatic neoplasm [Unknown]
  - Nodule [Unknown]

NARRATIVE: CASE EVENT DATE: 201504
